FAERS Safety Report 21924679 (Version 2)
Quarter: 2025Q2

REPORT INFORMATION
  Report Type: Spontaneous
  Country: US (occurrence: US)
  Receive Date: 20230130
  Receipt Date: 20250528
  Transmission Date: 20250716
  Serious: No
  Sender: CIPLA
  Company Number: US-CIPLA LTD.-2022US07623

PATIENT

DRUGS (1)
  1. ALBUTEROL [Suspect]
     Active Substance: ALBUTEROL
     Indication: Asthma
     Route: 065

REACTIONS (6)
  - Dyspnoea [Unknown]
  - Malaise [Unknown]
  - Device mechanical issue [Unknown]
  - Device ineffective [Unknown]
  - Device delivery system issue [Unknown]
  - Device defective [Unknown]
